FAERS Safety Report 23971955 (Version 1)
Quarter: 2024Q2

REPORT INFORMATION
  Report Type: Spontaneous
  Country: CN (occurrence: CN)
  Receive Date: 20240613
  Receipt Date: 20240613
  Transmission Date: 20240716
  Serious: Yes (Hospitalization, Other)
  Sender: FDA-Public Use
  Company Number: CN-BIOVITRUM-2024-CN-008447

PATIENT
  Age: 5 Year
  Sex: Female

DRUGS (2)
  1. AVATROMBOPAG [Suspect]
     Active Substance: AVATROMBOPAG
     Indication: Thrombocytopenia
     Dosage: DAILY
  2. DEXAMETHASONE [Concomitant]
     Active Substance: DEXAMETHASONE
     Indication: Product used for unknown indication
     Dosage: DAILY

REACTIONS (6)
  - Hypersensitivity [Unknown]
  - Off label use [Not Recovered/Not Resolved]
  - Epistaxis [Unknown]
  - Haemoglobin abnormal [Unknown]
  - Thrombocytopenia [Unknown]
  - Petechiae [Unknown]
